FAERS Safety Report 25219404 (Version 2)
Quarter: 2025Q2

REPORT INFORMATION
  Report Type: Spontaneous
  Country: US (occurrence: US)
  Receive Date: 20250421
  Receipt Date: 20250619
  Transmission Date: 20250716
  Serious: Yes (Hospitalization, Other)
  Sender: ELI LILLY AND COMPANY
  Company Number: US-ELI_LILLY_AND_COMPANY-US202504016510

PATIENT
  Age: 58 Year
  Sex: Female

DRUGS (1)
  1. VERZENIO [Suspect]
     Active Substance: ABEMACICLIB
     Indication: Breast cancer female
     Dosage: 150 MG, BID
     Route: 048

REACTIONS (17)
  - Intracranial mass [Unknown]
  - Gait disturbance [Unknown]
  - Pain [Unknown]
  - Insomnia [Unknown]
  - Abdominal discomfort [Unknown]
  - Pain [Unknown]
  - Crepitations [Unknown]
  - Visual impairment [Unknown]
  - Mass [Unknown]
  - Headache [Unknown]
  - Asthenia [Unknown]
  - Decreased appetite [Unknown]
  - Stomatitis [Unknown]
  - Nausea [Unknown]
  - Retching [Unknown]
  - Diarrhoea [Unknown]
  - Vomiting [Unknown]
